FAERS Safety Report 5645928-X (Version None)
Quarter: 2008Q1

REPORT INFORMATION
  Report Type: 
  Country: None (occurrence: None)
  Receive Date: 20080229
  Receipt Date: 20080219
  Transmission Date: 20080703
  Serious: Yes (Other)
  Sender: FDA-Public Use
  Company Number: US-PFIZER INC-2008015555

PATIENT
  Sex: Female

DRUGS (3)
  1. LYRICA [Suspect]
     Indication: CARPAL TUNNEL SYNDROME
  2. NAPROXEN [Interacting]
  3. TRAMADOL HCL [Interacting]

REACTIONS (8)
  - CHILLS [None]
  - DRUG INTERACTION [None]
  - DYSPNOEA [None]
  - HEADACHE [None]
  - HYPERSENSITIVITY [None]
  - PYREXIA [None]
  - TREMOR [None]
  - WITHDRAWAL SYNDROME [None]
